FAERS Safety Report 21578684 (Version 4)
Quarter: 2022Q4

REPORT INFORMATION
  Report Type: Report from Study
  Country: US (occurrence: US)
  Receive Date: 20221110
  Receipt Date: 20221212
  Transmission Date: 20230113
  Serious: No
  Sender: FDA-Public Use
  Company Number: US-002147023-NVSC2022US253854

PATIENT
  Sex: Female

DRUGS (2)
  1. ENTRESTO [Suspect]
     Active Substance: SACUBITRIL\VALSARTAN
     Indication: Cardiac failure
     Dosage: UNK UNK, BID
     Route: 048
  2. NICOTINE [Suspect]
     Active Substance: NICOTINE
     Indication: Smoking cessation therapy
     Dosage: UNK
     Route: 065

REACTIONS (8)
  - Stress [Unknown]
  - Malaise [Unknown]
  - Illness [Unknown]
  - Dyspnoea [Unknown]
  - Bronchitis [Unknown]
  - Sleep disorder [Recovered/Resolved]
  - Feeling abnormal [Unknown]
  - Weight increased [Unknown]
